FAERS Safety Report 20619680 (Version 1)
Quarter: 2022Q1

REPORT INFORMATION
  Report Type: Spontaneous
  Country: CA (occurrence: CA)
  Receive Date: 20220322
  Receipt Date: 20220322
  Transmission Date: 20220423
  Serious: Yes (Other)
  Sender: FDA-Public Use
  Company Number: CA-AUROBINDO-AUR-APL-2022-008782

PATIENT
  Age: 30 Year
  Sex: Male

DRUGS (1)
  1. AMPICILLIN [Suspect]
     Active Substance: AMPICILLIN
     Indication: Meningitis
     Dosage: UNK
     Route: 041

REACTIONS (2)
  - Drug eruption [Unknown]
  - Rash maculo-papular [Unknown]
